FAERS Safety Report 9170755 (Version 1)
Quarter: 2013Q1

REPORT INFORMATION
  Report Type: Spontaneous
  Country: US (occurrence: US)
  Receive Date: 20130319
  Receipt Date: 20130319
  Transmission Date: 20140127
  Serious: No
  Sender: FDA-Public Use
  Company Number: US-PFIZER INC-2013089011

PATIENT
  Age: 83 Year
  Sex: Female
  Weight: 62.1 kg

DRUGS (1)
  1. ADVIL [Suspect]
     Indication: BACK PAIN
     Dosage: 400 MG (TWO 200MG CAPSULES TOGETHER), ONCE DAILY
     Dates: start: 20130315

REACTIONS (1)
  - Drug ineffective [Not Recovered/Not Resolved]
